FAERS Safety Report 8975403 (Version 1)
Quarter: 2012Q4

REPORT INFORMATION
  Report Type: 
  Country: US (occurrence: US)
  Receive Date: 20121219
  Receipt Date: 20121219
  Transmission Date: 20130627
  Serious: No
  Sender: FDA-Public Use
  Company Number: US-AMGEN-USASP2012073043

PATIENT
  Sex: Female

DRUGS (11)
  1. PROLIA [Suspect]
     Indication: OSTEOPOROSIS POSTMENOPAUSAL
     Dosage: UNK
     Dates: start: 20121022
  2. LYRICA [Concomitant]
     Indication: POST HERPETIC NEURALGIA
     Dosage: 75 mg, bid
  3. HYOSCYAMINE [Concomitant]
     Indication: CHEST PAIN
     Dosage: UNK UNK, prn
  4. FISH OIL [Concomitant]
     Dosage: UNK
  5. VITAMIN D3 [Concomitant]
     Dosage: 2000 IU, bid
  6. VITAMIN B12                        /00056201/ [Concomitant]
  7. SYNTHROID [Concomitant]
     Dosage: 0.125 mg, UNK
  8. LOSARTAN [Concomitant]
     Dosage: 50 mg, qd
  9. ATORVASTATIN [Concomitant]
     Dosage: 10 mg, qd
  10. TUMS                               /00193601/ [Concomitant]
     Dosage: UNK UNK, qd
  11. OXYCODONE [Concomitant]
     Indication: POST HERPETIC NEURALGIA
     Dosage: UNK UNK, qhs

REACTIONS (7)
  - Flushing [Unknown]
  - Arthropathy [Unknown]
  - Influenza [Unknown]
  - Joint swelling [Unknown]
  - Arthralgia [Unknown]
  - Insomnia [Unknown]
  - Erythema [Unknown]
